FAERS Safety Report 8185464-2 (Version None)
Quarter: 2012Q1

REPORT INFORMATION
  Report Type: 
  Country: None (occurrence: None)
  Receive Date: 20120305
  Receipt Date: 20120301
  Transmission Date: 20120608
  Serious: Yes (Other)
  Sender: FDA-Public Use
  Company Number: JP-PFIZER INC-2012050350

PATIENT
  Age: 75 Year
  Sex: Male

DRUGS (4)
  1. ZOLOFT [Suspect]
     Dosage: 100 MG/DAY
     Route: 048
     Dates: start: 20120221
  2. ROZEREM [Suspect]
     Indication: SLEEP DISORDER
     Dosage: 8 MG/DAY
     Route: 048
     Dates: start: 20120220
  3. ZOLOFT [Suspect]
     Indication: DEPRESSION
     Dosage: 25 MG/DAY
     Route: 048
     Dates: end: 20120219
  4. ZOLOFT [Suspect]
     Dosage: 50 MG/DAY
     Route: 048
     Dates: start: 20120220, end: 20120220

REACTIONS (4)
  - EXTRAPYRAMIDAL DISORDER [None]
  - TREMOR [None]
  - MUSCLE RIGIDITY [None]
  - COGWHEEL RIGIDITY [None]
